FAERS Safety Report 12172130 (Version 1)
Quarter: 2016Q1

REPORT INFORMATION
  Report Type: Spontaneous
  Country: FR (occurrence: FR)
  Receive Date: 20160311
  Receipt Date: 20160311
  Transmission Date: 20160526
  Serious: Yes (Life-Threatening)
  Sender: FDA-Public Use
  Company Number: FR-SA-2016SA047836

PATIENT
  Age: 12 Month
  Sex: Female
  Weight: 11 kg

DRUGS (29)
  1. FUROSEMIDE. [Suspect]
     Active Substance: FUROSEMIDE
     Indication: OEDEMA
     Route: 042
     Dates: start: 20150203, end: 20150204
  2. HYDROCORTISONE. [Suspect]
     Active Substance: HYDROCORTISONE
     Indication: PURPURA FULMINANS
     Route: 042
     Dates: start: 20150205
  3. CEFTRIAXONE MYLAN [Concomitant]
     Active Substance: CEFTRIAXONE
     Dosage: 250MG
     Route: 042
     Dates: start: 20150202, end: 20150207
  4. MIDAZOLAM [Concomitant]
     Active Substance: MIDAZOLAM\MIDAZOLAM HYDROCHLORIDE
     Dosage: INJECTABLE OR RECTAL DOSE:5 MILLIGRAM(S)/MILLILITRE
     Dates: start: 20150201, end: 20150209
  5. CALCIUM GLUCONATE. [Concomitant]
     Active Substance: CALCIUM GLUCONATE
     Dates: start: 20150206, end: 20150208
  6. CLOTTAFACT [Concomitant]
     Active Substance: FIBRINOGEN HUMAN
     Route: 042
     Dates: start: 20150201, end: 20150201
  7. VITAMIN K1 [Concomitant]
     Active Substance: PHYTONADIONE
     Route: 042
     Dates: start: 20150202, end: 20150204
  8. DOBUTAMINE [Concomitant]
     Active Substance: DOBUTAMINE\DOBUTAMINE HYDROCHLORIDE
     Route: 042
     Dates: start: 20150201, end: 20150205
  9. GLUCOSE [Concomitant]
     Active Substance: DEXTROSE
     Dosage: INJECTABLE SOLUTION IN AMPULE
     Route: 042
     Dates: start: 20150201, end: 20150202
  10. FORLAX [Concomitant]
     Active Substance: POLYETHYLENE GLYCOL 4000
     Dosage: POWDER FOR ORAL SOLUTION IN DOSE - SACHET
     Route: 048
     Dates: start: 20150204, end: 20150213
  11. NORMACOL [Concomitant]
     Active Substance: KARAYA GUM
     Dates: start: 20150206, end: 20150212
  12. KETAMINE [Concomitant]
     Active Substance: KETAMINE
     Route: 042
     Dates: start: 20150201, end: 20150214
  13. PARACETAMOL [Concomitant]
     Active Substance: ACETAMINOPHEN
     Dosage: 10 MG / ML, SOLUTION FOR INFUSION
     Route: 042
     Dates: start: 20150201, end: 20150207
  14. VIALEBEX [Concomitant]
     Active Substance: ALBUMIN (HUMAN)
     Dosage: 200 MG / ML, SOLUTION FOR INFUSION
     Route: 042
     Dates: start: 20150204, end: 20150205
  15. BURINEX [Suspect]
     Active Substance: BUMETANIDE
     Indication: OEDEMA
     Route: 042
     Dates: start: 20150205
  16. HYDROCORTISONE. [Suspect]
     Active Substance: HYDROCORTISONE
     Indication: PURPURA FULMINANS
     Route: 042
     Dates: start: 20150201, end: 20150204
  17. ADRENALINE [Concomitant]
     Active Substance: EPINEPHRINE
     Dates: start: 20150201, end: 20150204
  18. NOREPINEPHRINE [Concomitant]
     Active Substance: NOREPINEPHRINE\NOREPINEPHRINE BITARTRATE
     Dosage: 2 MG / ML WITHOUT SULFITES, DILUTED SOLUTION FOR INFUSION
     Route: 042
     Dates: start: 20150201, end: 20150206
  19. PHOSPHONEUROS [Concomitant]
     Active Substance: CALCIUM PHOSPHATE, DIBASIC, ANHYDROUS\MAGNESIUM GLYCEROPHOSPHATE\PHOSPHORIC ACID\SODIUM PHOSPHATE, DIBASIC
     Dosage: ORAL SOLUTION
     Dates: start: 20150206, end: 20150207
  20. SUFENTANIL MYLAN [Concomitant]
     Active Substance: SUFENTANIL
     Dosage: 50 MICROGRAMS / ML, SOLUTION FOR INJECTION
     Route: 042
     Dates: start: 20150201, end: 20150209
  21. LASILIX [Suspect]
     Active Substance: FUROSEMIDE
     Indication: OEDEMA
     Dosage: DOSE: 5MG + 2X3 MG
     Route: 048
     Dates: start: 20150208
  22. LASILIX [Suspect]
     Active Substance: FUROSEMIDE
     Indication: OEDEMA
     Dosage: DOSE: 2X3 MG
     Route: 048
     Dates: start: 20150209
  23. FUROSEMIDE. [Suspect]
     Active Substance: FUROSEMIDE
     Indication: OEDEMA
     Dosage: DOSE: 3X5 MG
     Route: 042
     Dates: start: 20150207
  24. BURINEX [Suspect]
     Active Substance: BUMETANIDE
     Indication: OEDEMA
     Route: 042
     Dates: start: 20150204
  25. BURINEX [Suspect]
     Active Substance: BUMETANIDE
     Indication: OEDEMA
     Route: 042
     Dates: start: 20150206
  26. MAGNESIUM SULFATE. [Concomitant]
     Active Substance: MAGNESIUM SULFATE
     Dates: start: 20150206, end: 20150209
  27. FUROSEMIDE. [Suspect]
     Active Substance: FUROSEMIDE
     Indication: OEDEMA
     Route: 042
     Dates: start: 20150201, end: 20150202
  28. FUROSEMIDE. [Suspect]
     Active Substance: FUROSEMIDE
     Indication: OEDEMA
     Dosage: 3 MG/4 HOURS + 5 MG
     Route: 042
     Dates: start: 20150206
  29. CEFTRIAXONE MYLAN [Concomitant]
     Active Substance: CEFTRIAXONE
     Dosage: 500MG
     Route: 042
     Dates: start: 20150201

REACTIONS (2)
  - Hypernatraemia [Recovered/Resolved]
  - Hypokalaemia [Recovered/Resolved]
